FAERS Safety Report 18761605 (Version 1)
Quarter: 2021Q1

REPORT INFORMATION
  Report Type: Spontaneous
  Country: IN (occurrence: IN)
  Receive Date: 20210120
  Receipt Date: 20210120
  Transmission Date: 20210419
  Serious: Yes (Other)
  Sender: FDA-Public Use
  Company Number: IN-SGP-000017

PATIENT
  Age: 8 Year

DRUGS (2)
  1. CYCLOPHOSPHAMIDE. [Suspect]
     Active Substance: CYCLOPHOSPHAMIDE
     Indication: HAEMOLYTIC URAEMIC SYNDROME
     Route: 065
  2. METHYLPREDNISOLONE. [Suspect]
     Active Substance: METHYLPREDNISOLONE
     Indication: HAEMOLYTIC URAEMIC SYNDROME
     Route: 065

REACTIONS (2)
  - Pericardial effusion [Recovered/Resolved]
  - Product use in unapproved indication [Unknown]
